FAERS Safety Report 7559973-0 (Version None)
Quarter: 2011Q2

REPORT INFORMATION
  Report Type: 
  Country: None (occurrence: None)
  Receive Date: 20110621
  Receipt Date: 20110608
  Transmission Date: 20111010
  Serious: Yes (Other)
  Sender: FDA-Public Use
  Company Number: PHHY2011US49861

PATIENT
  Age: 81 Year
  Sex: Female

DRUGS (6)
  1. CINNAMON [Suspect]
     Dosage: UNK UKN, UNK
  2. PRILOSEC [Concomitant]
     Dosage: UNK UKN, UNK
  3. ZADITOR [Suspect]
     Dosage: UNK UKN, UNK
  4. BENADRYL ^WARNER-LAMBERT^               /USA/ [Suspect]
     Dosage: UNK UKN, UNK
  5. ZADITOR [Suspect]
     Dosage: UNK UKN, UNK
  6. ZADITOR [Suspect]
     Dosage: UNK UKN, UNK

REACTIONS (5)
  - EXPIRED DRUG ADMINISTERED [None]
  - BLOOD GLUCOSE DECREASED [None]
  - ASTHENIA [None]
  - EYE PRURITUS [None]
  - DYSPEPSIA [None]
